FAERS Safety Report 6628848-3 (Version None)
Quarter: 2010Q1

REPORT INFORMATION
  Report Type: 
  Country: None (occurrence: None)
  Receive Date: 20100311
  Receipt Date: 20100302
  Transmission Date: 20100710
  Serious: Yes (Hospitalization, Other)
  Sender: FDA-Public Use
  Company Number: US-BAYER-201015373NA

PATIENT
  Age: 45 Year
  Sex: Male

DRUGS (2)
  1. BETASERON [Suspect]
     Indication: MULTIPLE SCLEROSIS
     Dosage: TOTAL DAILY DOSE: 0.3 MG
     Route: 058
     Dates: start: 20090801
  2. VALTREX [Concomitant]

REACTIONS (3)
  - ABDOMINAL PAIN UPPER [None]
  - PANCREATITIS [None]
  - VOMITING [None]
